FAERS Safety Report 6106391-8 (Version None)
Quarter: 2009Q1

REPORT INFORMATION
  Report Type: 
  Country: None (occurrence: None)
  Receive Date: 20090306
  Receipt Date: 20090227
  Transmission Date: 20090719
  Serious: Yes (Hospitalization)
  Sender: FDA-Public Use
  Company Number: BE-B.I. PHARMACEUTICALS,INC./RIDGEFIELD-2008-BL-00265BL

PATIENT
  Sex: Female
  Weight: 75 kg

DRUGS (6)
  1. MOBIC [Suspect]
     Indication: ARTHRALGIA
     Dosage: 15MG
     Route: 048
     Dates: start: 20080902, end: 20080905
  2. VOLTAREN [Concomitant]
     Indication: PAIN
     Dates: start: 20080902, end: 20080902
  3. AGGRENOX [Concomitant]
     Indication: ANTICOAGULANT THERAPY
     Route: 048
  4. MERCK-GLICLAZIDE [Concomitant]
     Indication: DIABETES MELLITUS
     Route: 048
  5. LIPITOR [Concomitant]
     Indication: HYPERCHOLESTEROLAEMIA
     Route: 048
  6. RIVOTRIL [Concomitant]
     Indication: DIABETIC NEUROPATHY
     Route: 048

REACTIONS (3)
  - ACUTE PULMONARY OEDEMA [None]
  - CORONARY ARTERY DISEASE [None]
  - MITRAL VALVE STENOSIS [None]
